FAERS Safety Report 10246677 (Version 2)
Quarter: 2014Q3

REPORT INFORMATION
  Report Type: Spontaneous
  Country: US (occurrence: US)
  Receive Date: 20140619
  Receipt Date: 20140707
  Transmission Date: 20150326
  Serious: No
  Sender: FDA-Public Use
  Company Number: US-009507513-1406USA009141

PATIENT
  Age: 25 Year
  Sex: Male

DRUGS (4)
  1. LEXAPRO [Concomitant]
     Active Substance: ESCITALOPRAM OXALATE
     Dosage: UNK
  2. SOVALDI [Concomitant]
     Active Substance: SOFOSBUVIR
     Dosage: UNK
  3. RIBASPHERE RIBAPAK [Suspect]
     Active Substance: RIBAVIRIN
     Dosage: UNK
  4. PEGINTRON [Suspect]
     Active Substance: PEGINTERFERON ALFA-2B
     Indication: HEPATITIS C
     Dosage: UNK; REDIPEN, THERAPY ROUTE: INJECTION
     Dates: start: 20140429

REACTIONS (7)
  - Hyperhidrosis [Unknown]
  - Product quality issue [Unknown]
  - Fatigue [Unknown]
  - Vomiting [Unknown]
  - Drug dose omission [Unknown]
  - Pyrexia [Unknown]
  - Asthenia [Unknown]

NARRATIVE: CASE EVENT DATE: 2014
